FAERS Safety Report 18768642 (Version 1)
Quarter: 2021Q1

REPORT INFORMATION
  Report Type: Spontaneous
  Country: US (occurrence: US)
  Receive Date: 20210121
  Receipt Date: 20210121
  Transmission Date: 20210419
  Serious: Yes (Hospitalization)
  Sender: FDA-Public Use
  Company Number: None

PATIENT
  Age: 69 Year
  Sex: Male
  Weight: 96.5 kg

DRUGS (1)
  1. BAMLANIVIMAB, NOT A DEVICE [Suspect]
     Active Substance: BAMLANIVIMAB

REACTIONS (3)
  - Hypoxia [None]
  - COVID-19 [None]
  - Disease progression [None]

NARRATIVE: CASE EVENT DATE: 20210119
